FAERS Safety Report 13047548 (Version 2)
Quarter: 2017Q1

REPORT INFORMATION
  Report Type: Spontaneous
  Country: JP (occurrence: JP)
  Receive Date: 20161220
  Receipt Date: 20170201
  Transmission Date: 20170428
  Serious: Yes (Hospitalization, Other)
  Sender: FDA-Public Use
  Company Number: JP-TEVA-2016-JP-002973J

PATIENT
  Age: 58 Year
  Weight: 51 kg

DRUGS (6)
  1. SEVOFLURANE. [Concomitant]
     Active Substance: SEVOFLURANE
     Route: 055
  2. ULTIVA [Concomitant]
     Active Substance: REMIFENTANIL HYDROCHLORIDE
     Route: 042
  3. ESLAX [Concomitant]
     Active Substance: ROCURONIUM BROMIDE
     Route: 042
  4. PROPOFOL. [Concomitant]
     Active Substance: PROPOFOL
     Route: 042
  5. CEFAZOLIN SODIUM FOR INJECTION 1G TAIYO [Suspect]
     Active Substance: CEFAZOLIN SODIUM
     Indication: ANTIBIOTIC PROPHYLAXIS
     Dosage: 1 GRAM DAILY;
     Route: 042
     Dates: start: 20161021, end: 20161021
  6. FENTANYL. [Concomitant]
     Active Substance: FENTANYL
     Route: 065

REACTIONS (4)
  - Anaphylactic shock [Recovered/Resolved]
  - Rash generalised [Unknown]
  - Blood pressure decreased [Unknown]
  - Eyelid oedema [Unknown]

NARRATIVE: CASE EVENT DATE: 20161021
